FAERS Safety Report 4740055-8 (Version None)
Quarter: 2005Q3

REPORT INFORMATION
  Report Type: 
  Country: None (occurrence: None)
  Receive Date: 20050809
  Receipt Date: 20050809
  Transmission Date: 20060218
  Serious: Yes (Other)
  Sender: FDA-Public Use
  Company Number: None

PATIENT
  Sex: Male
  Weight: 83.9154 kg

DRUGS (1)
  1. CAPZASIN HP HP CHATTEM [Suspect]
     Indication: BACK PAIN
     Dosage: ONCE
     Dates: start: 20050806, end: 20050806

REACTIONS (6)
  - APPLICATION SITE ERYTHEMA [None]
  - APPLICATION SITE IRRITATION [None]
  - APPLICATION SITE PAIN [None]
  - BURNING SENSATION [None]
  - MEDICATION ERROR [None]
  - PAIN [None]
